FAERS Safety Report 16377083 (Version 2)
Quarter: 2019Q2

REPORT INFORMATION
  Report Type: Report from Study
  Country: GT (occurrence: GT)
  Receive Date: 20190531
  Receipt Date: 20190604
  Transmission Date: 20190711
  Serious: Yes (Hospitalization, Other)
  Sender: FDA-Public Use
  Company Number: PHHY2018GT111085

PATIENT
  Age: 42 Year
  Sex: Female
  Weight: 127 kg

DRUGS (8)
  1. ALPROZOLAM [Concomitant]
     Active Substance: ALPRAZOLAM
     Indication: RESTLESSNESS
     Dosage: 0.5 MG, UNK (HALF TABLET)
     Route: 048
  2. PREGABALIN. [Suspect]
     Active Substance: PREGABALIN
     Indication: PAIN
     Dosage: 150 MG, QD
     Route: 048
  3. VALPAKINE [Concomitant]
     Active Substance: VALPROATE SODIUM
     Indication: EPILEPSY
     Dosage: 2 OF 500 MG, QD
     Route: 065
  4. GILENYA [Suspect]
     Active Substance: FINGOLIMOD HYDROCHLORIDE
     Dosage: 0.5 MG, QD
     Route: 065
  5. PENICILLIN [Suspect]
     Active Substance: PENICILLIN
     Indication: PRODUCT USED FOR UNKNOWN INDICATION
     Dosage: UNK
     Route: 065
  6. GILENYA [Suspect]
     Active Substance: FINGOLIMOD HYDROCHLORIDE
     Indication: MULTIPLE SCLEROSIS
     Dosage: 0.5 MG, UNK
     Route: 065
     Dates: start: 201810
  7. PREGABALIN. [Suspect]
     Active Substance: PREGABALIN
     Indication: FACIAL PAIN
  8. ALPROZOLAM [Concomitant]
     Active Substance: ALPRAZOLAM
     Indication: NERVOUSNESS

REACTIONS (50)
  - Fatigue [Unknown]
  - Dyschromatopsia [Recovering/Resolving]
  - Visual acuity reduced [Unknown]
  - Muscular weakness [Unknown]
  - Gait disturbance [Unknown]
  - Drug hypersensitivity [Unknown]
  - Vision blurred [Unknown]
  - Dysphagia [Recovering/Resolving]
  - Dyskinesia [Recovering/Resolving]
  - Musculoskeletal pain [Unknown]
  - Nervousness [Unknown]
  - Dizziness [Unknown]
  - Dry mouth [Unknown]
  - Spinal disorder [Unknown]
  - Hepatic steatosis [Unknown]
  - Anxiety [Unknown]
  - Coordination abnormal [Recovering/Resolving]
  - Hypoaesthesia [Unknown]
  - Pain in extremity [Unknown]
  - Asthenia [Unknown]
  - Multiple sclerosis relapse [Recovering/Resolving]
  - Facial pain [Unknown]
  - Paraesthesia [Unknown]
  - Muscle spasms [Unknown]
  - Intervertebral disc protrusion [Unknown]
  - Spinal pain [Unknown]
  - Neuralgia [Unknown]
  - Gallbladder disorder [Unknown]
  - Emotional disorder [Unknown]
  - Pain [Recovering/Resolving]
  - Tremor [Unknown]
  - Cyst [Unknown]
  - Chondropathy [Unknown]
  - Fall [Unknown]
  - Malaise [Unknown]
  - Feeling abnormal [Unknown]
  - Urinary incontinence [Recovering/Resolving]
  - Ataxia [Recovering/Resolving]
  - Syncope [Unknown]
  - Peripheral swelling [Unknown]
  - Arthralgia [Unknown]
  - Tachycardia [Unknown]
  - Speech disorder [Recovering/Resolving]
  - Anal incontinence [Recovering/Resolving]
  - Mobility decreased [Unknown]
  - Helicobacter infection [Unknown]
  - Abdominal discomfort [Unknown]
  - Gastritis [Unknown]
  - Joint swelling [Unknown]
  - Dyspnoea [Unknown]

NARRATIVE: CASE EVENT DATE: 201811
